FAERS Safety Report 6375694-4 (Version None)
Quarter: 2009Q3

REPORT INFORMATION
  Report Type: 
  Country: None (occurrence: None)
  Receive Date: 20090924
  Receipt Date: 20090910
  Transmission Date: 20100115
  Serious: Yes (Hospitalization, Other)
  Sender: FDA-Public Use
  Company Number: GB-BAYER-200823759GPV

PATIENT
  Age: 80 Year
  Sex: Female

DRUGS (7)
  1. AMITRIPTYLINE [Interacting]
     Indication: DEPRESSION
     Route: 042
  2. AMITRIPTYLINE [Interacting]
     Route: 048
  3. PRAVASTATIN [Interacting]
     Indication: HYPERCHOLESTEROLAEMIA
     Route: 048
  4. ASPIRIN [Suspect]
     Indication: DRUG USE FOR UNKNOWN INDICATION
     Route: 065
  5. ARTHROTEC [Suspect]
     Indication: ARTHRITIS
     Dosage: TOTAL DAILY DOSE: 100 MG
     Route: 065
  6. ATENOLOL [Suspect]
     Indication: HYPERTENSION
     Route: 065
  7. LEVOTHYROXINE SODIUM [Suspect]
     Indication: HYPOTHYROIDISM
     Route: 065

REACTIONS (9)
  - ABDOMINAL DISCOMFORT [None]
  - ANAEMIA [None]
  - COLITIS [None]
  - DECREASED APPETITE [None]
  - DEHYDRATION [None]
  - DIARRHOEA [None]
  - DRUG LEVEL INCREASED [None]
  - LARGE INTESTINAL ULCER [None]
  - WEIGHT DECREASED [None]
